FAERS Safety Report 5451424-5 (Version None)
Quarter: 2007Q3

REPORT INFORMATION
  Report Type: 
  Country: None (occurrence: None)
  Receive Date: 20070913
  Receipt Date: 20070903
  Transmission Date: 20080115
  Serious: Yes (Hospitalization)
  Sender: FDA-Public Use
  Company Number: B0485975A

PATIENT
  Age: 75 Year
  Sex: Male

DRUGS (1)
  1. ZELITREX [Suspect]
     Indication: ENCEPHALITIS HERPES
     Dosage: 500MG TWICE PER DAY
     Route: 048
     Dates: start: 20070726, end: 20070727

REACTIONS (4)
  - ABNORMAL BEHAVIOUR [None]
  - AGGRESSION [None]
  - CONFUSIONAL STATE [None]
  - OVERDOSE [None]
